FAERS Safety Report 9441997 (Version 2)
Quarter: 2016Q2

REPORT INFORMATION
  Report Type: Spontaneous
  Country: BR (occurrence: BR)
  Receive Date: 20130806
  Receipt Date: 20160503
  Transmission Date: 20160815
  Serious: Yes (Other)
  Sender: FDA-Public Use
  Company Number: BR-AMGEN-BRASP2012079960

PATIENT
  Age: 60 Year
  Sex: Female
  Weight: 60 kg

DRUGS (12)
  1. ENBREL [Suspect]
     Active Substance: ETANERCEPT
     Indication: ANKYLOSING SPONDYLITIS
     Dosage: 50 MG, ONCE WEEKLY
     Route: 058
     Dates: start: 201211, end: 201211
  2. VALSARTAN. [Concomitant]
     Active Substance: VALSARTAN
     Indication: HYPERTENSION
     Dosage: 150 MG, UNK
  3. APRESOLINE HYDROCHLORIDE [Concomitant]
     Active Substance: HYDRALAZINE HYDROCHLORIDE
     Indication: ANKYLOSING SPONDYLITIS
     Dosage: STRENGTH 10MG, ONCE A DAY
     Dates: start: 1982
  4. PARACETAMOL [Concomitant]
     Active Substance: ACETAMINOPHEN
     Indication: PAIN
     Dosage: 500 MG, Q4H
  5. PRESS PLUS [Concomitant]
     Dosage: UNK
     Dates: start: 1982
  6. DORFLEX [Concomitant]
     Active Substance: CAFFEINE\DIPYRONE\ORPHENADRINE
     Indication: PAIN
     Dosage: UNK UNK, Q4H
  7. PROPRANOLOL [Concomitant]
     Active Substance: PROPRANOLOL\PROPRANOLOL HYDROCHLORIDE
     Indication: ANKYLOSING SPONDYLITIS
     Dosage: STRENGTH 40MG, TWICE A DAY
     Dates: start: 1982
  8. AMLODIPINE [Concomitant]
     Active Substance: AMLODIPINE BESYLATE
     Indication: ANKYLOSING SPONDYLITIS
     Dosage: STREGTH 10MG, ONCE A DAY
  9. ISOSORBIDE. [Concomitant]
     Active Substance: ISOSORBIDE
     Indication: ANKYLOSING SPONDYLITIS
     Dosage: UNK, TWICE A DAY
     Dates: start: 1982
  10. HYDROCHLOROTHIAZIDE. [Concomitant]
     Active Substance: HYDROCHLOROTHIAZIDE
     Dosage: UNK
  11. ENALAPRIL [Concomitant]
     Active Substance: ENALAPRIL
     Indication: ANKYLOSING SPONDYLITIS
     Dosage: STRENGTH 20MG, TWICE A DAY
     Dates: start: 1982
  12. OMEPRAZOL                          /00661201/ [Concomitant]
     Active Substance: OMEPRAZOLE
     Dosage: STREGTH 20MG, TWICE A DAY

REACTIONS (12)
  - Activities of daily living impaired [Unknown]
  - Body height decreased [Unknown]
  - Movement disorder [Unknown]
  - Pain [Unknown]
  - Gait disturbance [Unknown]
  - Arthralgia [Unknown]
  - Abasia [Unknown]
  - Condition aggravated [Unknown]
  - Bedridden [Unknown]
  - Feeding disorder [Unknown]
  - Nuchal rigidity [Unknown]
  - Weight decreased [Unknown]

NARRATIVE: CASE EVENT DATE: 20121203
